FAERS Safety Report 8246809-8 (Version None)
Quarter: 2012Q1

REPORT INFORMATION
  Report Type: 
  Country: None (occurrence: None)
  Receive Date: 20120330
  Receipt Date: 20120321
  Transmission Date: 20120608
  Serious: Yes (Hospitalization)
  Sender: FDA-Public Use
  Company Number: SE-NOVOPROD-348013

PATIENT
  Age: 79 Year
  Sex: Female

DRUGS (13)
  1. OMEPRAZOLE [Concomitant]
  2. ISOPTIN                            /00014302/ [Concomitant]
  3. FUROSEMIDE [Concomitant]
  4. CANODERM [Concomitant]
  5. VICTOZA [Suspect]
     Indication: PRODUCT USED FOR UNKNOWN INDICATION
     Dosage: UNK
     Route: 065
  6. METOPROLOL SUCCINATE [Suspect]
     Route: 065
  7. ZOPIKLON [Concomitant]
  8. DIGOXIN [Suspect]
     Route: 065
  9. ATACAND [Concomitant]
  10. LEVOTHYROXINE SODIUM [Concomitant]
  11. WARFARIN SODIUM [Concomitant]
  12. NATRIUMBIKARBONAT [Concomitant]
  13. ETALPHA [Concomitant]

REACTIONS (2)
  - BRADYCARDIA [None]
  - NAUSEA [None]
